FAERS Safety Report 4945351-7 (Version None)
Quarter: 2006Q1

REPORT INFORMATION
  Report Type: 
  Country: None (occurrence: None)
  Receive Date: 20060315
  Receipt Date: 20060315
  Transmission Date: 20060701
  Serious: Yes (Other)
  Sender: FDA-Public Use
  Company Number: None

PATIENT
  Sex: Male
  Weight: 70 kg

DRUGS (1)
  1. CYMBALTA [Suspect]
     Indication: NEUROPATHY
     Dosage: 30 MG DAILY ORAL
     Route: 048
     Dates: start: 20060109, end: 20060303

REACTIONS (2)
  - DRUG INTERACTION [None]
  - SCLERAL HAEMORRHAGE [None]
